FAERS Safety Report 18685914 (Version 2)
Quarter: 2021Q2

REPORT INFORMATION
  Report Type: Spontaneous
  Country: IT (occurrence: IT)
  Receive Date: 20201231
  Receipt Date: 20210623
  Transmission Date: 20210717
  Serious: Yes (Other)
  Sender: FDA-Public Use
  Company Number: IT-AUROBINDO-AUR-APL-2020-063630

PATIENT
  Sex: Female

DRUGS (14)
  1. SOTALOL. [Suspect]
     Active Substance: SOTALOL
     Dosage: 6 MILLIGRAM/KILOGRAM, DAILY (6 MG THRICE A DAY)
     Route: 065
  2. FLECAINIDE [Suspect]
     Active Substance: FLECAINIDE
     Indication: PROPHYLAXIS
     Dosage: UNK
     Route: 063
  3. ADENOSINE. [Suspect]
     Active Substance: ADENOSINE
     Indication: ATRIAL TACHYCARDIA
     Dosage: 0.2 MILLIGRAM/KILOGRAM
     Route: 065
  4. DIGOXIN. [Suspect]
     Active Substance: DIGOXIN
     Dosage: 10 MICROGRAM/KILOGRAM
     Route: 048
  5. PROPANOLOL [Suspect]
     Active Substance: PROPRANOLOL HYDROCHLORIDE
     Indication: ATRIAL TACHYCARDIA
     Dosage: 2.5 MILLIGRAM/KILOGRAM, ONCE A DAY
     Route: 065
  6. SOTALOL. [Suspect]
     Active Substance: SOTALOL
     Indication: PRODUCT USED FOR UNKNOWN INDICATION
     Dosage: 3 MILLIGRAM/KILOGRAM, DAILY (3 MG THRICE A DAY)
     Route: 065
  7. FLECAINIDE [Suspect]
     Active Substance: FLECAINIDE
     Dosage: 130 MILLIGRAM/SQ. METER, DAILY
     Route: 065
  8. DIGOXIN. [Suspect]
     Active Substance: DIGOXIN
     Indication: TACHYCARDIA
     Dosage: 10 DOSAGE FORM
     Route: 048
  9. FLECAINIDE [Suspect]
     Active Substance: FLECAINIDE
     Indication: SUPRAVENTRICULAR TACHYARRHYTHMIA
     Dosage: 50 MILLIGRAM/SQ. METER, ONCE A DAY
     Route: 065
  10. DIGOXIN. [Suspect]
     Active Substance: DIGOXIN
     Dosage: UNK
     Route: 063
  11. FLECAINIDE [Suspect]
     Active Substance: FLECAINIDE
     Dosage: 80 MILLIGRAM/SQ. METER, DAILY (4 MG FOUR TIMES A DAY)
     Route: 065
  12. AMIODARONE [Suspect]
     Active Substance: AMIODARONE
     Indication: ATRIAL TACHYCARDIA
     Dosage: 5 MILLIGRAM/KILOGRAM
     Route: 042
  13. AMIODARONE [Suspect]
     Active Substance: AMIODARONE
     Dosage: 10 MILLIGRAM/KILOGRAM, ONCE A DAY
     Route: 042
  14. AMIODARONE [Suspect]
     Active Substance: AMIODARONE
     Dosage: 18 MILLIGRAM/KILOGRAM, ONCE A DAY
     Route: 042

REACTIONS (6)
  - Low birth weight baby [Recovered/Resolved]
  - Foetal exposure during pregnancy [Unknown]
  - Incorrect dose administered [Unknown]
  - Drug ineffective [Unknown]
  - Premature baby [Unknown]
  - Tachycardia [Recovered/Resolved]
